FAERS Safety Report 7726124-9 (Version None)
Quarter: 2011Q3

REPORT INFORMATION
  Report Type: 
  Country: None (occurrence: None)
  Receive Date: 20110902
  Receipt Date: 20110825
  Transmission Date: 20111222
  Serious: Yes (Hospitalization)
  Sender: FDA-Public Use
  Company Number: US-JNJFOC-20110811666

PATIENT
  Sex: Female
  Weight: 71.67 kg

DRUGS (1)
  1. REMICADE [Suspect]
     Indication: CROHN'S DISEASE
     Route: 042
     Dates: start: 20101001, end: 20110401

REACTIONS (6)
  - ABDOMINAL PAIN UPPER [None]
  - MESENTERITIS [None]
  - HEADACHE [None]
  - ADVERSE EVENT [None]
  - INTESTINAL STENOSIS [None]
  - MUSCLE SPASMS [None]
